FAERS Safety Report 5734153-X (Version None)
Quarter: 2008Q2

REPORT INFORMATION
  Report Type: 
  Country: None (occurrence: None)
  Receive Date: 20080509
  Receipt Date: 20080429
  Transmission Date: 20081010
  Serious: Yes (Hospitalization)
  Sender: FDA-Public Use
  Company Number: FR-GENENTECH-260567

PATIENT
  Sex: Male

DRUGS (11)
  1. MABTHERA [Suspect]
     Indication: NON-HODGKIN'S LYMPHOMA
     Dosage: UNK, UNKNOWN
     Route: 042
     Dates: end: 20080125
  2. ADRIAMYCIN PFS [Suspect]
     Indication: NON-HODGKIN'S LYMPHOMA
     Dosage: UNK, UNKNOWN
     Route: 042
     Dates: end: 20080125
  3. ENDOXAN [Suspect]
     Indication: NON-HODGKIN'S LYMPHOMA
     Dosage: UNK, UNKNOWN
     Route: 042
     Dates: end: 20080125
  4. ONCOVIN [Suspect]
     Indication: NON-HODGKIN'S LYMPHOMA
     Dosage: UNK, UNKNOWN
     Route: 042
     Dates: end: 20080125
  5. FONZYLANE [Concomitant]
     Indication: DRUG USE FOR UNKNOWN INDICATION
  6. OLMETEC [Concomitant]
     Indication: DRUG USE FOR UNKNOWN INDICATION
  7. ESCITALOPRAM [Concomitant]
     Indication: DRUG USE FOR UNKNOWN INDICATION
  8. FENOFIBRATE [Concomitant]
     Indication: DRUG USE FOR UNKNOWN INDICATION
  9. STILNOX [Concomitant]
     Indication: DRUG USE FOR UNKNOWN INDICATION
  10. LYSANXIA [Concomitant]
     Indication: DRUG USE FOR UNKNOWN INDICATION
  11. SKENAN [Concomitant]
     Indication: DRUG USE FOR UNKNOWN INDICATION

REACTIONS (2)
  - DYSPNOEA [None]
  - FACE OEDEMA [None]
